FAERS Safety Report 15675087 (Version 1)
Quarter: 2018Q4

REPORT INFORMATION
  Report Type: Spontaneous
  Country: US (occurrence: US)
  Receive Date: 20181130
  Receipt Date: 20181130
  Transmission Date: 20190205
  Serious: No
  Sender: FDA-Public Use
  Company Number: US-PFIZER INC-2018480453

PATIENT
  Sex: Female

DRUGS (2)
  1. FOLIC ACID. [Concomitant]
     Active Substance: FOLIC ACID
     Dosage: 1 MG, UNK; [EVERY 4TH OR 5TH DAY]
  2. METHOTREXATE SODIUM. [Suspect]
     Active Substance: METHOTREXATE SODIUM
     Indication: RHEUMATOID ARTHRITIS
     Dosage: 2.5 MG, 1X/DAY

REACTIONS (5)
  - Feeling abnormal [Not Recovered/Not Resolved]
  - Wheezing [Unknown]
  - Condition aggravated [Unknown]
  - Bone disorder [Unknown]
  - Pain [Not Recovered/Not Resolved]
